FAERS Safety Report 4795079-1 (Version None)
Quarter: 2005Q4

REPORT INFORMATION
  Report Type: 
  Country: None (occurrence: None)
  Receive Date: 20051006
  Receipt Date: 20050922
  Transmission Date: 20060501
  Serious: Yes (Hospitalization, Other)
  Sender: FDA-Public Use
  Company Number: 2005BI006606

PATIENT
  Age: 51 Year
  Sex: Female

DRUGS (2)
  1. AVONEX [Suspect]
     Indication: MULTIPLE SCLEROSIS
     Dosage: 30 UG;QW; IM
     Route: 030
     Dates: start: 19990101, end: 20040518
  2. AVONEX [Suspect]
     Indication: MULTIPLE SCLEROSIS
     Dosage: 30 UG;QW; IM
     Route: 030
     Dates: start: 20050824

REACTIONS (9)
  - ANKLE FRACTURE [None]
  - BACK PAIN [None]
  - DIABETIC COMA [None]
  - DIABETIC COMPLICATION [None]
  - FALL [None]
  - FRACTURE [None]
  - GASTRIC ULCER HAEMORRHAGE [None]
  - MYOCARDIAL INFARCTION [None]
  - SHOCK [None]
